FAERS Safety Report 14333688 (Version 1)
Quarter: 2017Q4

REPORT INFORMATION
  Report Type: Spontaneous
  Country: US (occurrence: US)
  Receive Date: 20171227
  Receipt Date: 20171227
  Transmission Date: 20180321
  Serious: No
  Sender: FDA-Public Use
  Company Number: None

PATIENT
  Age: 63 Year
  Sex: Female

DRUGS (11)
  1. IBRANCE [Suspect]
     Active Substance: PALBOCICLIB
     Indication: NEOPLASM MALIGNANT
     Dosage: 1 CAPSULE FOR 1-21 DAILY ORAL
     Route: 048
     Dates: start: 20170404
  2. COENZYME Q10 [Concomitant]
     Active Substance: UBIDECARENONE
  3. SYNTHROID [Concomitant]
     Active Substance: LEVOTHYROXINE SODIUM
  4. FEMARA [Suspect]
     Active Substance: LETROZOLE
  5. NORCO [Concomitant]
     Active Substance: ACETAMINOPHEN\HYDROCODONE BITARTRATE
  6. POTASSIUM [Concomitant]
     Active Substance: POTASSIUM
  7. CORTISONE CREAM [Concomitant]
     Active Substance: HYDROCORTISONE
  8. VITAMIN C [Concomitant]
     Active Substance: ASCORBIC ACID
  9. VITAMIN D [Concomitant]
     Active Substance: CHOLECALCIFEROL
  10. LEVOTHYROXIN [Concomitant]
     Active Substance: LEVOTHYROXINE
  11. MAGNESIUM [Concomitant]
     Active Substance: MAGNESIUM

REACTIONS (6)
  - Agitation [None]
  - Dehydration [None]
  - Depression [None]
  - White blood cell count decreased [None]
  - Therapy cessation [None]
  - Infection [None]
